FAERS Safety Report 20430450 (Version 1)
Quarter: 2022Q1

REPORT INFORMATION
  Report Type: Report from Study
  Country: US (occurrence: US)
  Receive Date: 20220204
  Receipt Date: 20220204
  Transmission Date: 20220424
  Serious: Yes (Hospitalization)
  Sender: FDA-Public Use
  Company Number: None

PATIENT

DRUGS (21)
  1. ONCASPAR [Suspect]
     Active Substance: PEGASPARGASE
     Indication: Acute lymphocytic leukaemia
     Dosage: 1550 IU, ONE DOSE
     Route: 042
     Dates: start: 20190514, end: 20190514
  2. ONCASPAR [Suspect]
     Active Substance: PEGASPARGASE
     Dosage: 1550 IU, ONE DOSE
     Route: 042
     Dates: start: 20190611, end: 20190611
  3. ONCASPAR [Suspect]
     Active Substance: PEGASPARGASE
     Dosage: 1675 IU, ONE DOSE
     Route: 042
     Dates: start: 20190909, end: 20190909
  4. ONCASPAR [Suspect]
     Active Substance: PEGASPARGASE
     Dosage: 1775 IU
     Route: 042
     Dates: start: 20191028
  5. RUXOLITINIB PHOSPHATE [Suspect]
     Active Substance: RUXOLITINIB PHOSPHATE
     Indication: Acute lymphocytic leukaemia
     Dosage: 30 MG, BID, 14 DAY ON 14 DAYS OFF
     Route: 048
     Dates: start: 20190430, end: 20190919
  6. METHOTREXATE SODIUM [Suspect]
     Active Substance: METHOTREXATE SODIUM
     Indication: Acute lymphocytic leukaemia
     Dosage: 12 MG, ONE DOSE
     Route: 037
     Dates: start: 20190429, end: 20191021
  7. METHOTREXATE SODIUM [Suspect]
     Active Substance: METHOTREXATE SODIUM
     Dosage: 3250 MG
     Route: 037
     Dates: start: 20190705, end: 20200816
  8. CYTARABINE [Suspect]
     Active Substance: CYTARABINE
     Indication: Acute lymphocytic leukaemia
     Dosage: 45 MG, QD
     Route: 042
     Dates: start: 20190430, end: 20190606
  9. CYTARABINE [Suspect]
     Active Substance: CYTARABINE
     Dosage: 53 MG, QD
     Route: 042
     Dates: start: 20191014
  10. MERCAPTOPURINE [Suspect]
     Active Substance: MERCAPTOPURINE
     Indication: Acute lymphocytic leukaemia
     Dosage: 36 MG, QD
     Route: 048
     Dates: start: 20190430, end: 20190610
  11. MERCAPTOPURINE [Suspect]
     Active Substance: MERCAPTOPURINE
     Dosage: 16 MG, UNK
     Route: 048
     Dates: start: 20190705
  12. VINCRISTINE SULFATE [Suspect]
     Active Substance: VINCRISTINE SULFATE
     Indication: Acute lymphocytic leukaemia
     Dosage: 0.95 MG, UNK
     Route: 042
     Dates: start: 20190514
  13. VINCRISTINE SULFATE [Suspect]
     Active Substance: VINCRISTINE SULFATE
     Dosage: 1 MG, UNK
     Route: 042
     Dates: start: 20190705
  14. DECADRON [Suspect]
     Active Substance: DEXAMETHASONE
     Indication: Acute lymphocytic leukaemia
     Dosage: 3.5 MG, UNK X7 DAYS
     Route: 048
     Dates: start: 20190906
  15. DOXORUBICIN HYDROCHLORIDE [Suspect]
     Active Substance: DOXORUBICIN HYDROCHLORIDE
     Indication: Acute lymphocytic leukaemia
     Dosage: 17 MG, ONE DOSE
     Route: 042
     Dates: start: 20190906
  16. CYCLOPHOSPHAMIDE [Suspect]
     Active Substance: CYCLOPHOSPHAMIDE
     Indication: Acute lymphocytic leukaemia
     Dosage: 620 MG, ONE DOSE
     Route: 042
     Dates: start: 20190430, end: 20190528
  17. CYCLOPHOSPHAMIDE [Suspect]
     Active Substance: CYCLOPHOSPHAMIDE
     Dosage: 710 MG, UNK
     Route: 042
     Dates: start: 20191014
  18. THIOGUANINE [Suspect]
     Active Substance: THIOGUANINE
     Indication: Acute lymphocytic leukaemia
     Dosage: 40 MG, QD
     Route: 048
     Dates: start: 20191014
  19. NORVASC [Concomitant]
     Active Substance: AMLODIPINE BESYLATE
     Indication: Product used for unknown indication
     Dosage: UNK
     Route: 065
     Dates: start: 20190417
  20. TENEX [Concomitant]
     Active Substance: GUANFACINE HYDROCHLORIDE
     Indication: Product used for unknown indication
     Dosage: UNK
     Route: 065
     Dates: start: 20190618
  21. TN UNSPECIFIED [Concomitant]
     Indication: Product used for unknown indication
     Dosage: UNK
     Route: 065
     Dates: start: 20190924

REACTIONS (4)
  - Pancytopenia [Recovered/Resolved]
  - Streptococcal infection [Recovered/Resolved]
  - Pertussis [Recovered/Resolved]
  - Pyrexia [Recovered/Resolved]

NARRATIVE: CASE EVENT DATE: 20191027
